FAERS Safety Report 11629850 (Version 2)
Quarter: 2015Q4

REPORT INFORMATION
  Report Type: Spontaneous
  Country: US (occurrence: US)
  Receive Date: 20151014
  Receipt Date: 20151130
  Transmission Date: 20160304
  Serious: Yes (Other)
  Sender: FDA-Public Use
  Company Number: US-ASTELLAS-2015US036891

PATIENT
  Sex: Female

DRUGS (4)
  1. ADENOSINE. [Suspect]
     Active Substance: ADENOSINE
     Indication: ARRHYTHMIA
     Dosage: UNK UNK, UNKNOWN FREQ.
     Route: 065
  2. PAXIL [Suspect]
     Active Substance: PAROXETINE HYDROCHLORIDE
     Indication: DEPRESSION
     Route: 065
     Dates: start: 1998
  3. PAXIL [Suspect]
     Active Substance: PAROXETINE HYDROCHLORIDE
     Indication: ANXIETY
  4. XANAX [Concomitant]
     Active Substance: ALPRAZOLAM
     Indication: PRODUCT USED FOR UNKNOWN INDICATION
     Dosage: UNK UNK, UNKNOWN FREQ.
     Route: 065

REACTIONS (4)
  - Heart rate increased [Recovered/Resolved]
  - Cardiac ablation [Recovered/Resolved]
  - Dizziness [Recovering/Resolving]
  - Back pain [Not Recovered/Not Resolved]
